FAERS Safety Report 6399954-6 (Version None)
Quarter: 2009Q4

REPORT INFORMATION
  Report Type: 
  Country: None (occurrence: None)
  Receive Date: 20091008
  Receipt Date: 20091008
  Transmission Date: 20100525
  Serious: Yes (Hospitalization)
  Sender: FDA-Public Use
  Company Number: None

PATIENT
  Age: 57 Year
  Sex: Female
  Weight: 128.4 kg

DRUGS (10)
  1. LISINOPRIL [Suspect]
     Indication: HYPERTENSION
     Dosage: 10MG ONCE DAILY PO
     Route: 048
     Dates: end: 20090906
  2. METOPROLOL [Concomitant]
  3. ALBUTEROL [Concomitant]
  4. NEPHROCAPS [Concomitant]
  5. RENVELA [Concomitant]
  6. REGLAN [Concomitant]
  7. PROTONIX [Concomitant]
  8. PLAVIX [Concomitant]
  9. TRAMADOL HCL [Concomitant]
  10. ISOSORBIDE MONONITRATE [Concomitant]

REACTIONS (3)
  - ANGIOEDEMA [None]
  - LOOSE TOOTH [None]
  - RESPIRATORY FAILURE [None]
